FAERS Safety Report 5048932-8 (Version None)
Quarter: 2006Q3

REPORT INFORMATION
  Report Type: 
  Country: None (occurrence: None)
  Receive Date: 20060712
  Receipt Date: 20050824
  Transmission Date: 20061208
  Serious: No
  Sender: FDA-Public Use
  Company Number: US-GLAXOSMITHKLINE-A0571932A

PATIENT
  Sex: Male

DRUGS (20)
  1. IMITREX [Suspect]
     Indication: MIGRAINE
     Dosage: 100MG AS REQUIRED
     Route: 048
  2. CYMBALTA [Concomitant]
     Dates: start: 20050809
  3. AMITRIPTYLINE HCL [Concomitant]
     Route: 048
     Dates: start: 20040707
  4. BUTALBITAL, ACETAMINOPHEN, CAFFEINE [Concomitant]
     Dates: start: 20040709
  5. PROMETHAZINE [Concomitant]
     Dates: start: 20040709
  6. AXERT [Concomitant]
     Dates: start: 20040709
  7. METHYLPREDNISOLONE [Concomitant]
     Route: 048
     Dates: start: 20041014
  8. INDOMETHACIN [Concomitant]
     Dates: start: 20041014
  9. HYDROCODONE BITARTRATE + ACETAMINOPHEN [Concomitant]
     Dates: start: 20041027
  10. BEXTRA [Concomitant]
     Route: 048
     Dates: start: 20041027
  11. PROPOXYPHENE HCL AND ACETAMINOPHEN [Concomitant]
     Dates: start: 20041102
  12. CYCLOBENZAPRINE HCL [Concomitant]
     Dates: start: 20041202
  13. PROFEN [Concomitant]
     Dates: start: 20041224
  14. BENZONATATE [Concomitant]
     Dates: start: 20041224
  15. PREDNISONE [Concomitant]
     Dates: start: 20050112
  16. CIPROFLOXACIN [Concomitant]
     Dates: start: 20050112
  17. GABAPENTIN [Concomitant]
     Dates: start: 20050125
  18. DURAGESIC-100 [Concomitant]
     Dates: start: 20050125
  19. FENTANYL TRANSDERMAL SYSTEM [Concomitant]
     Dates: start: 20050203
  20. ULTRACET [Concomitant]
     Dates: start: 20041202

REACTIONS (1)
  - DRUG SCREEN POSITIVE [None]
